FAERS Safety Report 4349505-2 (Version None)
Quarter: 2004Q2

REPORT INFORMATION
  Report Type: 
  Country: None (occurrence: None)
  Receive Date: 20040426
  Receipt Date: 20040414
  Transmission Date: 20050107
  Serious: Yes (Hospitalization)
  Sender: FDA-Public Use
  Company Number: US-JNJFOC-20040403434

PATIENT
  Age: 75 Year
  Sex: Male

DRUGS (1)
  1. DURAGESIC [Suspect]
     Indication: CANCER PAIN
     Dosage: 25 UG/HR, TRANSDERMAL
     Route: 062
     Dates: start: 20040412

REACTIONS (6)
  - CONFUSIONAL STATE [None]
  - PYREXIA [None]
  - RESPIRATORY DEPRESSION [None]
  - RESPIRATORY FAILURE [None]
  - SEPSIS [None]
  - URINARY TRACT INFECTION [None]
